FAERS Safety Report 8945349 (Version 1)
Quarter: 2012Q4

REPORT INFORMATION
  Report Type: 
  Country: HU (occurrence: HU)
  Receive Date: 20121205
  Receipt Date: 20121205
  Transmission Date: 20130627
  Serious: Yes (Other)
  Sender: FDA-Public Use
  Company Number: HU-PFIZER INC-2012300224

PATIENT
  Age: 70 Year
  Sex: Male
  Weight: 92 kg

DRUGS (4)
  1. XALATAN [Suspect]
     Indication: GLAUCOMA
     Dosage: 1x1 drop/day
     Dates: start: 2006
  2. PROSTERID [Concomitant]
     Dosage: UNK
  3. PROTEXIN [Concomitant]
     Dosage: UNK
  4. LANSOPTOL [Concomitant]
     Dosage: UNK

REACTIONS (2)
  - Visual impairment [Not Recovered/Not Resolved]
  - Halo vision [Not Recovered/Not Resolved]
